FAERS Safety Report 9288473 (Version 1)
Quarter: 2013Q2

REPORT INFORMATION
  Report Type: Spontaneous
  Country: GB (occurrence: GB)
  Receive Date: 20130514
  Receipt Date: 20130514
  Transmission Date: 20140414
  Serious: Yes (Other)
  Sender: FDA-Public Use
  Company Number: GB-ELI_LILLY_AND_COMPANY-GB201305000608

PATIENT
  Age: 15 Year
  Sex: Female
  Weight: 90 kg

DRUGS (1)
  1. FLUOXETINE [Suspect]
     Indication: DEPRESSION
     Dosage: 20 MG, QD
     Route: 048
     Dates: start: 20130208, end: 20130415

REACTIONS (2)
  - Hallucinations, mixed [Not Recovered/Not Resolved]
  - Intentional self-injury [Unknown]
